FAERS Safety Report 4303360-5 (Version None)
Quarter: 2004Q1

REPORT INFORMATION
  Report Type: 
  Country: None (occurrence: None)
  Receive Date: 20040223
  Receipt Date: 20040218
  Transmission Date: 20041129
  Serious: Yes (Other)
  Sender: FDA-Public Use
  Company Number: NZ-JNJFOC-20040203683

PATIENT
  Age: 70 Year
  Sex: Female

DRUGS (5)
  1. ITRACONAZOLE (ITRACONAZOLE) SOLUTION [Suspect]
     Indication: FUNGAL INFECTION
     Dosage: 200 MG, 2 IN 1 DAY, ORAL
     Route: 048
  2. BUDESONIDE (BUDESONIDE) INHALATION [Suspect]
     Indication: ASTHMA
     Dosage: 400 UG, 3 IN 1 DAY;  800 UG, 2 IN 1 DAY
  3. DILTIAZEM [Concomitant]
  4. BENDROFLUAZIDE (BENDROFLUMETHIAZIDE) [Concomitant]
  5. TERBUTALINE SULFATE [Concomitant]

REACTIONS (11)
  - ASTHMA [None]
  - BLOOD CORTICOTROPHIN DECREASED [None]
  - BLOOD CORTISOL DECREASED [None]
  - BLOOD PRESSURE SYSTOLIC INCREASED [None]
  - CONDITION AGGRAVATED [None]
  - CUSHING'S SYNDROME [None]
  - DRUG INTERACTION INHIBITION [None]
  - FATIGUE [None]
  - JOINT SWELLING [None]
  - LETHARGY [None]
  - SECONDARY ADRENOCORTICAL INSUFFICIENCY [None]
